FAERS Safety Report 13121248 (Version 2)
Quarter: 2017Q1

REPORT INFORMATION
  Report Type: Spontaneous
  Country: IT (occurrence: IT)
  Receive Date: 20170117
  Receipt Date: 20170327
  Transmission Date: 20170428
  Serious: Yes (Hospitalization)
  Sender: FDA-Public Use
  Company Number: IT-PFIZER INC-2017014880

PATIENT
  Age: 69 Year
  Sex: Male

DRUGS (9)
  1. EPIRUBICIN HCL [Suspect]
     Active Substance: EPIRUBICIN HYDROCHLORIDE
     Indication: GASTRIC CANCER
     Dosage: UNK, CYCLIC (EVERY 21 DAYS)
     Route: 042
     Dates: start: 20161125
  2. OXALIPLATINO SUN [Suspect]
     Active Substance: OXALIPLATIN
     Dosage: 240 MG, TOTAL
     Route: 042
     Dates: start: 20161216, end: 20161216
  3. CAPECITABINA MEDAC [Suspect]
     Active Substance: CAPECITABINE
     Indication: GASTRIC CANCER
     Dosage: UNK, CYCLIC (EVERY 21 DAYS)
     Route: 048
     Dates: start: 20161125
  4. CAPECITABINA MEDAC [Suspect]
     Active Substance: CAPECITABINE
     Dosage: 2300 MG, DAILY
     Route: 048
     Dates: start: 20161216, end: 20161216
  5. EPIRUBICIN HCL [Suspect]
     Active Substance: EPIRUBICIN HYDROCHLORIDE
     Dosage: 92 MG, TOTAL
     Route: 042
     Dates: start: 20161216, end: 20161216
  6. PRETERAX [Suspect]
     Active Substance: INDAPAMIDE\PERINDOPRIL
     Dosage: 1 DF, DAILY
     Route: 048
  7. IVEMEND [Concomitant]
     Active Substance: FOSAPREPITANT DIMEGLUMINE
     Indication: PREMEDICATION
     Dosage: 150 MG, UNK
     Route: 042
     Dates: start: 20161216, end: 20161216
  8. ONDANSETRON [Concomitant]
     Active Substance: ONDANSETRON
     Indication: PREMEDICATION
     Dosage: 8 MG, UNK
     Route: 042
     Dates: start: 20161216, end: 20161216
  9. OXALIPLATINO SUN [Suspect]
     Active Substance: OXALIPLATIN
     Indication: GASTRIC CANCER
     Dosage: UNK, CYCLIC (EVERY 21 DAYS)
     Route: 042
     Dates: start: 20161125

REACTIONS (6)
  - Diarrhoea [Not Recovered/Not Resolved]
  - Acute kidney injury [Not Recovered/Not Resolved]
  - Skin ulcer [Unknown]
  - Septic shock [Not Recovered/Not Resolved]
  - Neutropenia [Not Recovered/Not Resolved]
  - Cardio-respiratory arrest [Not Recovered/Not Resolved]

NARRATIVE: CASE EVENT DATE: 20161223
